FAERS Safety Report 13468270 (Version 1)
Quarter: 2017Q2

REPORT INFORMATION
  Report Type: Report from Study
  Country: ES (occurrence: ES)
  Receive Date: 20170421
  Receipt Date: 20170421
  Transmission Date: 20170830
  Serious: Yes (Death, Hospitalization)
  Sender: FDA-Public Use
  Company Number: ES-TEVA-762274ROM

PATIENT
  Age: 88 Year
  Sex: Female

DRUGS (9)
  1. FENTANYL TRANSDERMAL SYSTEM [Suspect]
     Active Substance: FENTANYL
     Indication: SPINAL FRACTURE
     Dosage: 1-0-0
     Route: 062
     Dates: start: 20160401
  2. FRUSEMIDE APOTEX [Concomitant]
     Active Substance: FUROSEMIDE
     Dates: start: 20150505
  3. ENALAPRIL ALTER [Concomitant]
     Active Substance: ENALAPRIL MALEATE
     Dates: start: 20150505
  4. SINTROM [Concomitant]
     Active Substance: ACENOCOUMAROL
     Dates: start: 20150414
  5. TRAMADOL W/PARACETAMOL [Suspect]
     Active Substance: ACETAMINOPHEN\TRAMADOL
     Indication: SPINAL FRACTURE
     Dosage: 1-1-1
     Route: 048
     Dates: start: 20160509
  6. ESPIRONOLACTONA ALTER [Concomitant]
     Active Substance: SPIRONOLACTONE
     Dates: start: 20150505
  7. EUTIROX [Concomitant]
     Active Substance: LEVOTHYROXINE SODIUM
     Dates: start: 20150505
  8. CARVEDILOL ALMUS [Concomitant]
     Active Substance: CARVEDILOL
     Dates: start: 20150505
  9. MOTILIUM [Concomitant]
     Active Substance: DOMPERIDONE
     Dates: start: 20150925

REACTIONS (5)
  - Intestinal ischaemia [Fatal]
  - Renal impairment [None]
  - Hypertension [None]
  - Depressed level of consciousness [None]
  - Pleural effusion [None]

NARRATIVE: CASE EVENT DATE: 20160519
